FAERS Safety Report 9697069 (Version 2)
Quarter: 2016Q2

REPORT INFORMATION
  Report Type: Report from Study
  Country: US (occurrence: US)
  Receive Date: 20131120
  Receipt Date: 20160509
  Transmission Date: 20160815
  Serious: Yes (Other)
  Sender: FDA-Public Use
  Company Number: US-ROCHE-1305779

PATIENT

DRUGS (3)
  1. VORINOSTAT [Suspect]
     Active Substance: VORINOSTAT
     Indication: PANCREATIC CARCINOMA
     Route: 065
  2. CAPECITABINE. [Suspect]
     Active Substance: CAPECITABINE
     Indication: PANCREATIC CARCINOMA
     Dosage: TWICE A DAILY (Q12) WAS ADMINISTERED ON THE DAYS OF RADIATION?PATIENTS DEEMED UNRESECTABLE AT POST-T
     Route: 065
  3. VORINOSTAT [Suspect]
     Active Substance: VORINOSTAT
     Dosage: PATIENTS DEEMED UNRESECTABLE AT POST-TREATMENT IMAGING WERE GIVEN THE OPTION OF CONTINUING ON STUDY
     Route: 065

REACTIONS (9)
  - Hypokalaemia [Unknown]
  - Diarrhoea [Unknown]
  - Hyperglycaemia [Unknown]
  - Vomiting [Unknown]
  - Dehydration [Unknown]
  - Leukopenia [Unknown]
  - Fatigue [Unknown]
  - Nausea [Unknown]
  - Lymphopenia [Unknown]
